FAERS Safety Report 7650756-X (Version None)
Quarter: 2011Q3

REPORT INFORMATION
  Report Type: 
  Country: None (occurrence: None)
  Receive Date: 20110802
  Receipt Date: 20110728
  Transmission Date: 20111222
  Serious: Yes (Other)
  Sender: FDA-Public Use
  Company Number: US-PFIZER INC-2011172468

PATIENT
  Sex: Female
  Weight: 49.887 kg

DRUGS (1)
  1. SUTENT [Suspect]
     Indication: GASTRIC CANCER
     Dosage: 50 MG, 1X/DAY
     Route: 048
     Dates: start: 20110707

REACTIONS (1)
  - RECTAL HAEMORRHAGE [None]
